FAERS Safety Report 24039908 (Version 1)
Quarter: 2024Q3

REPORT INFORMATION
  Report Type: 
  Country: US (occurrence: US)
  Receive Date: 20240702
  Receipt Date: 20240702
  Transmission Date: 20241016
  Serious: Yes (Other)
  Sender: NIVAGEN PHARMACEUTICALS
  Company Number: None

PATIENT

DRUGS (1)
  1. HYDROCORTISONE [Suspect]
     Active Substance: HYDROCORTISONE\HYDROCORTISONE ACETATE
     Indication: Product used for unknown indication
     Dosage: HYDROCORTISONE ACETATE SUPPOSITORY 25MG 1 TIME
     Route: 065

REACTIONS (3)
  - Rectal haemorrhage [Unknown]
  - Hair growth abnormal [Unknown]
  - Product substitution issue [Unknown]
